FAERS Safety Report 5327813-6 (Version None)
Quarter: 2007Q2

REPORT INFORMATION
  Report Type: 
  Country: None (occurrence: None)
  Receive Date: 20070517
  Receipt Date: 20070508
  Transmission Date: 20071010
  Serious: Yes (Hospitalization)
  Sender: FDA-Public Use
  Company Number: US-JNJFOC-20070502203

PATIENT
  Sex: Female
  Weight: 62.6 kg

DRUGS (6)
  1. DOXORUBICIN HCL [Suspect]
     Indication: OVARIAN CANCER
     Dosage: 2 CYCLES
     Route: 042
  2. EFFEXOR [Concomitant]
     Route: 065
  3. POTASSIUM ACETATE [Concomitant]
     Route: 065
  4. VITAMIN B6 [Concomitant]
     Route: 048
  5. GLUCOSAMINE CHONDROITIN [Concomitant]
     Dosage: 1.5G/1.2G
     Route: 065
  6. AMMONIUM LACTATE [Concomitant]
     Route: 061

REACTIONS (6)
  - CARBOHYDRATE ANTIGEN 125 INCREASED [None]
  - DYSPHAGIA [None]
  - GLOSSODYNIA [None]
  - RASH PRURITIC [None]
  - SKIN DISORDER [None]
  - STOMATITIS [None]
